FAERS Safety Report 13059676 (Version 1)
Quarter: 2016Q4

REPORT INFORMATION
  Report Type: Spontaneous
  Country: US (occurrence: US)
  Receive Date: 20161223
  Receipt Date: 20161223
  Transmission Date: 20170207
  Serious: Yes (Other)
  Sender: FDA-Public Use
  Company Number: US-AMGEN-USASP2016178610

PATIENT
  Age: 73 Year
  Sex: Male

DRUGS (1)
  1. ARANESP [Suspect]
     Active Substance: DARBEPOETIN ALFA
     Indication: PRODUCT USED FOR UNKNOWN INDICATION
     Dosage: 300 MUG, UNK
     Route: 065

REACTIONS (3)
  - Injection site pain [Unknown]
  - Lung neoplasm malignant [Unknown]
  - Prostate cancer [Unknown]

NARRATIVE: CASE EVENT DATE: 20161122
